FAERS Safety Report 19767248 (Version 1)
Quarter: 2021Q3

REPORT INFORMATION
  Report Type: Spontaneous
  Country: US (occurrence: US)
  Receive Date: 20210827
  Receipt Date: 20210827
  Transmission Date: 20211014
  Serious: No
  Sender: FDA-Public Use
  Company Number: None

PATIENT
  Age: 63 Year
  Sex: Male

DRUGS (2)
  1. VOSEVI [Suspect]
     Active Substance: SOFOSBUVIR\VELPATASVIR\VOXILAPREVIR
     Indication: CHRONIC HEPATITIS C
     Dosage: ?          OTHER DOSE:400?100?100MG;?
     Route: 048
     Dates: start: 20210623
  2. RIBAVIRIN 200MG AUROBINDO PHARMA [Suspect]
     Active Substance: RIBAVIRIN
     Indication: CHRONIC HEPATITIS C
     Route: 048
     Dates: start: 20210623

REACTIONS (2)
  - Arthropod bite [None]
  - Rash [None]

NARRATIVE: CASE EVENT DATE: 20210625
